FAERS Safety Report 15781675 (Version 15)
Quarter: 2021Q4

REPORT INFORMATION
  Report Type: Spontaneous
  Country: US (occurrence: US)
  Receive Date: 20190102
  Receipt Date: 20211123
  Transmission Date: 20220303
  Serious: No
  Sender: FDA-Public Use
  Company Number: US-PFIZER INC-2018533722

PATIENT
  Age: 38 Year
  Sex: Female
  Weight: 57 kg

DRUGS (6)
  1. LYRICA [Suspect]
     Active Substance: PREGABALIN
     Indication: Neuropathy peripheral
     Dosage: 50 MG, 2X/DAY
  2. LYRICA [Suspect]
     Active Substance: PREGABALIN
     Dosage: 50 MG, 3X/DAY
  3. LYRICA [Suspect]
     Active Substance: PREGABALIN
     Dosage: 50 MG, 4X/DAY
     Route: 048
     Dates: start: 201810
  4. LYRICA [Suspect]
     Active Substance: PREGABALIN
     Dosage: 300 MG, DAILY (2 CAPSULES IN THE MORNING (AM) AND 4 EVERY BEDTIME (QHS))
     Route: 048
     Dates: start: 20190523
  5. LYRICA [Suspect]
     Active Substance: PREGABALIN
     Dosage: 400 MG, DAILY [8 PILLS A DAY]
  6. LYRICA [Suspect]
     Active Substance: PREGABALIN
     Dosage: 400 MG, DAILY (TAKE TWO CAPSULES IN THE AM. TWO CAPSULES IN AFTERNOON AND 4 CAPSULES AT BEDTIME)

REACTIONS (3)
  - Product dispensing error [Unknown]
  - Intentional product use issue [Unknown]
  - Fatigue [Not Recovered/Not Resolved]
